FAERS Safety Report 11111705 (Version 2)
Quarter: 2015Q3

REPORT INFORMATION
  Report Type: Report from Study
  Country: BR (occurrence: BR)
  Receive Date: 20150514
  Receipt Date: 20150709
  Transmission Date: 20151125
  Serious: Yes (Hospitalization)
  Sender: FDA-Public Use
  Company Number: PHHY2015BR045170

PATIENT
  Sex: Male
  Weight: 23.35 kg

DRUGS (3)
  1. EXJADE [Suspect]
     Active Substance: DEFERASIROX
     Dosage: 0.5 DF (500 MG), QD
     Route: 065
  2. EXJADE [Suspect]
     Active Substance: DEFERASIROX
     Dosage: 1 DF (500 MG, 20 MG/KG), QD
     Route: 065
  3. EXJADE [Suspect]
     Active Substance: DEFERASIROX
     Indication: SICKLE CELL ANAEMIA
     Dosage: 1 DF (250 MG, 10 MG/KG), QD
     Route: 065

REACTIONS (3)
  - Pyrexia [Recovered/Resolved]
  - Gastrointestinal infection [Recovered/Resolved]
  - Wrong technique in product usage process [Unknown]
